FAERS Safety Report 4762174-2 (Version None)
Quarter: 2005Q3

REPORT INFORMATION
  Report Type: 
  Country: None (occurrence: None)
  Receive Date: 20050906
  Receipt Date: 20050906
  Transmission Date: 20060218
  Serious: No
  Sender: FDA-Public Use
  Company Number: None

PATIENT
  Age: 58 Year
  Sex: Female
  Weight: 48.9885 kg

DRUGS (2)
  1. DEXAMETHASONE [Suspect]
     Indication: INFLAMMATION
     Dosage: 4MG   1 PER DAY   PO
     Route: 048
     Dates: start: 20050812, end: 20050816
  2. DEXAMETHASONE [Suspect]
     Indication: PAIN
     Dosage: 4MG   1 PER DAY   PO
     Route: 048
     Dates: start: 20050812, end: 20050816

REACTIONS (1)
  - GASTRIC ULCER [None]
